FAERS Safety Report 5167896-X (Version None)
Quarter: 2006Q4

REPORT INFORMATION
  Report Type: 
  Country: None (occurrence: None)
  Receive Date: 20061208
  Receipt Date: 20061023
  Transmission Date: 20070319
  Serious: Yes (Other)
  Sender: FDA-Public Use
  Company Number: PHMT2006CA02007

PATIENT
  Age: 65 Year
  Sex: Female

DRUGS (3)
  1. AMANTADINE HCL [Concomitant]
     Indication: AGITATION
  2. LORAZEPAM [Concomitant]
     Indication: AGITATION
  3. EXELON [Suspect]
     Dosage: 3 MG QAM AND 4.5 MG QHS
     Route: 048
     Dates: start: 20060101

REACTIONS (4)
  - AGITATION [None]
  - COGNITIVE DISORDER [None]
  - PSYCHOTIC DISORDER [None]
  - RESTLESSNESS [None]
